FAERS Safety Report 22058184 (Version 1)
Quarter: 2023Q1

REPORT INFORMATION
  Report Type: Spontaneous
  Country: CN (occurrence: CN)
  Receive Date: 20230303
  Receipt Date: 20230303
  Transmission Date: 20230418
  Serious: Yes (Other)
  Sender: FDA-Public Use
  Company Number: CN-SA-SAC20230225000009

PATIENT
  Age: 83 Year
  Sex: Female
  Weight: 53 kg

DRUGS (6)
  1. INSULIN GLARGINE [Suspect]
     Active Substance: INSULIN GLARGINE
     Indication: Blood glucose abnormal
     Dosage: 6 U QN BEFORE SLEEP HS
     Route: 058
     Dates: start: 20230213
  2. INSULIN GLARGINE [Suspect]
     Active Substance: INSULIN GLARGINE
     Dosage: UNKNOWN DOSE 1X
     Dates: start: 20230217, end: 20230217
  3. INSULIN ASPART [Suspect]
     Active Substance: INSULIN ASPART
     Indication: Blood glucose decreased
     Dosage: 8 U SC BEFORE THREE MEALS
     Route: 058
     Dates: start: 20230213
  4. IMRECOXIB [Suspect]
     Active Substance: IMRECOXIB
     Indication: Pain
     Dosage: 0.1 G, BID
     Route: 048
     Dates: start: 20230213
  5. CELECOXIB [Concomitant]
     Active Substance: CELECOXIB
     Dosage: 10 TABLETS (1 G) ONCE
     Route: 048
     Dates: start: 20230217, end: 20230217
  6. OXYGEN [Concomitant]
     Active Substance: OXYGEN
     Dosage: UNK
     Dates: start: 20230217

REACTIONS (1)
  - Overdose [Recovering/Resolving]

NARRATIVE: CASE EVENT DATE: 20230217
